FAERS Safety Report 13469091 (Version 1)
Quarter: 2017Q2

REPORT INFORMATION
  Report Type: Spontaneous
  Country: IN (occurrence: IN)
  Receive Date: 20170421
  Receipt Date: 20170421
  Transmission Date: 20170830
  Serious: Yes (Death, Other)
  Sender: FDA-Public Use
  Company Number: IN-PFIZER INC-2017173191

PATIENT

DRUGS (1)
  1. CRIZALK [Suspect]
     Active Substance: CRIZOTINIB

REACTIONS (1)
  - Death [Fatal]

NARRATIVE: CASE EVENT DATE: 20170213
